FAERS Safety Report 20142610 (Version 1)
Quarter: 2021Q4

REPORT INFORMATION
  Report Type: Spontaneous
  Country: US (occurrence: None)
  Receive Date: 20211202
  Receipt Date: 20211202
  Transmission Date: 20220303
  Serious: Yes (Other)
  Sender: FDA-Public Use
  Company Number: US-ROCHE-2848865

PATIENT
  Age: 74 Year
  Sex: Male

DRUGS (6)
  1. VALIUM [Suspect]
     Active Substance: DIAZEPAM
     Indication: Product used for unknown indication
     Route: 065
  2. MIRABEGRON [Suspect]
     Active Substance: MIRABEGRON
     Indication: Product used for unknown indication
     Route: 065
  3. MIRABEGRON [Suspect]
     Active Substance: MIRABEGRON
     Route: 065
  4. MIRABEGRON [Suspect]
     Active Substance: MIRABEGRON
     Route: 065
     Dates: start: 2021, end: 2021
  5. MIRABEGRON [Suspect]
     Active Substance: MIRABEGRON
     Route: 065
     Dates: start: 202104
  6. MIRABEGRON [Suspect]
     Active Substance: MIRABEGRON
     Route: 048
     Dates: start: 20210415

REACTIONS (5)
  - Urinary retention [Recovering/Resolving]
  - Thinking abnormal [Unknown]
  - Cerebral disorder [Unknown]
  - Micturition urgency [Unknown]
  - Bladder pain [Unknown]
